APPROVED DRUG PRODUCT: METHAZOLAMIDE
Active Ingredient: METHAZOLAMIDE
Strength: 25MG
Dosage Form/Route: TABLET;ORAL
Application: A040011 | Product #001
Applicant: APPLIED ANALYTICAL INDUSTRIES
Approved: Jul 17, 1997 | RLD: No | RS: No | Type: DISCN